FAERS Safety Report 4307142-X (Version None)
Quarter: 2004Q1

REPORT INFORMATION
  Report Type: 
  Country: None (occurrence: None)
  Receive Date: 20040225
  Receipt Date: 20040216
  Transmission Date: 20041129
  Serious: Yes (Other)
  Sender: FDA-Public Use
  Company Number: AU-JNJFOC-20040201902

PATIENT
  Age: 52 Year
  Sex: Female

DRUGS (1)
  1. RISPERDAL CONSTA [Suspect]
     Indication: SCHIZOPHRENIA
     Dosage: 25 MG, 1 IN 2 WEEK, INTRAMUSCULAR
     Route: 030
     Dates: start: 20040202

REACTIONS (1)
  - MUTISM [None]
